FAERS Safety Report 4270186-0 (Version None)
Quarter: 2004Q1

REPORT INFORMATION
  Report Type: 
  Country: None (occurrence: None)
  Receive Date: 20040112
  Receipt Date: 20031231
  Transmission Date: 20041129
  Serious: Yes (Other)
  Sender: FDA-Public Use
  Company Number: HQWYE258715OCT03

PATIENT
  Age: 84 Year
  Sex: Male
  Weight: 68.1 kg

DRUGS (1)
  1. ZOSYN [Suspect]
     Indication: SEPSIS
     Dosage: INTRAVENOUS
     Route: 042
     Dates: start: 20031012, end: 20031014

REACTIONS (5)
  - ATRIAL FIBRILLATION [None]
  - DYSPNOEA [None]
  - FLUID OVERLOAD [None]
  - HEART RATE INCREASED [None]
  - MEDICATION ERROR [None]
